FAERS Safety Report 17473510 (Version 1)
Quarter: 2020Q1

REPORT INFORMATION
  Report Type: Report from Study
  Country: GB (occurrence: GB)
  Receive Date: 20200228
  Receipt Date: 20200228
  Transmission Date: 20200409
  Serious: Yes (Other)
  Sender: FDA-Public Use
  Company Number: GB-JNJFOC-20190332161

PATIENT
  Age: 35 Year
  Sex: Female

DRUGS (3)
  1. LANSOPRAZOLE. [Concomitant]
     Active Substance: LANSOPRAZOLE
     Route: 065
  2. STELARA [Suspect]
     Active Substance: USTEKINUMAB
     Indication: CROHN^S DISEASE
     Route: 058
     Dates: start: 20170919, end: 201902
  3. STELARA [Suspect]
     Active Substance: USTEKINUMAB
     Route: 058
     Dates: end: 201902

REACTIONS (10)
  - Cystitis [Recovered/Resolved]
  - Hypokinesia [Recovered/Resolved]
  - Decreased appetite [Recovered/Resolved]
  - Migraine [Recovered/Resolved]
  - Dysstasia [Recovered/Resolved]
  - Hypersomnia [Recovered/Resolved]
  - Confusional state [Recovered/Resolved]
  - Urinary tract infection [Recovered/Resolved]
  - Crohn^s disease [Recovered/Resolved]
  - Nerve injury [Recovered/Resolved]

NARRATIVE: CASE EVENT DATE: 201803
